FAERS Safety Report 5277206-5 (Version None)
Quarter: 2007Q1

REPORT INFORMATION
  Report Type: 
  Country: None (occurrence: None)
  Receive Date: 20070322
  Receipt Date: 20070322
  Transmission Date: 20070707
  Serious: Yes (Other)
  Sender: FDA-Public Use
  Company Number: None

PATIENT
  Age: 43 Year
  Sex: Female
  Weight: 68.0396 kg

DRUGS (1)
  1. PRO-AIR HFA 8.5MG IVAX PHARMACEUTICALS [Suspect]
     Indication: ASTHMA
     Dosage: 2 PUFFS 4 TIMES DAILY PO
     Route: 048
     Dates: start: 20070314, end: 20070320

REACTIONS (5)
  - DEVICE INEFFECTIVE [None]
  - DRUG INEFFECTIVE [None]
  - DYSGEUSIA [None]
  - THERAPEUTIC RESPONSE UNEXPECTED WITH DRUG SUBSTITUTION [None]
  - UNEVALUABLE EVENT [None]
